FAERS Safety Report 5741305-1 (Version None)
Quarter: 2008Q2

REPORT INFORMATION
  Report Type: 
  Country: None (occurrence: None)
  Receive Date: 20080515
  Receipt Date: 20080305
  Transmission Date: 20081010
  Serious: Yes (Other)
  Sender: FDA-Public Use
  Company Number: 2007S1012840

PATIENT
  Age: 13 Year
  Sex: Female

DRUGS (2)
  1. AMNESTEEM [Suspect]
     Dosage: 40 MG; EVERY OTHER DAY; ORAL ; 80 MG; EVERY OTHER DAY; ORAL
     Route: 048
     Dates: start: 20070312, end: 20070501
  2. AMNESTEEM [Suspect]
     Dosage: 40 MG; EVERY OTHER DAY; ORAL ; 80 MG; EVERY OTHER DAY; ORAL
     Route: 048
     Dates: start: 20070312, end: 20070501

REACTIONS (4)
  - DRUG DISPENSING ERROR [None]
  - DRUG EXPOSURE DURING PREGNANCY [None]
  - PREGNANCY [None]
  - TREATMENT NONCOMPLIANCE [None]
